FAERS Safety Report 16362393 (Version 1)
Quarter: 2019Q2

REPORT INFORMATION
  Report Type: Spontaneous
  Country: US (occurrence: US)
  Receive Date: 20190528
  Receipt Date: 20190528
  Transmission Date: 20190711
  Serious: No
  Sender: FDA-Public Use
  Company Number: US-PFIZER INC-2019226138

PATIENT
  Age: 72 Year
  Sex: Female
  Weight: 88.45 kg

DRUGS (2)
  1. TOBRAMYCIN + DEXAMETHASONE [Suspect]
     Active Substance: DEXAMETHASONE\TOBRAMYCIN
     Indication: GLAUCOMA
     Dosage: 1 GTT , 1X/DAY (1 DROP LEFT EYE)
     Route: 031
  2. LATANOPROST. [Suspect]
     Active Substance: LATANOPROST
     Indication: GLAUCOMA
     Dosage: UNK, (LEFT EYE)

REACTIONS (1)
  - Weight decreased [Unknown]
